FAERS Safety Report 4274077-0 (Version None)
Quarter: 2004Q1

REPORT INFORMATION
  Report Type: 
  Country: None (occurrence: None)
  Receive Date: 20040115
  Receipt Date: 20040108
  Transmission Date: 20041129
  Serious: Yes (Life-Threatening, Hospitalization)
  Sender: FDA-Public Use
  Company Number: DE-JNJFOC-20031202908

PATIENT
  Age: 79 Year
  Sex: Male
  Weight: 82.6 kg

DRUGS (4)
  1. DURAGESIC [Suspect]
     Indication: BACK PAIN
     Dosage: 25 UG/HR, TRANSDERMAL
     Route: 062
     Dates: start: 20031208
  2. DELIX (TABLETS) RAMIPRIL [Concomitant]
  3. NOVALGIN (DROPS) METAMIZOLE SODUIM [Concomitant]
  4. VOLTAREN (DICLOFENAC SODIUM) TABLETS [Concomitant]

REACTIONS (3)
  - BRONCHOSPASM [None]
  - C-REACTIVE PROTEIN INCREASED [None]
  - HYPERTENSION [None]
